FAERS Safety Report 8960033 (Version 2)
Quarter: 2014Q2

REPORT INFORMATION
  Report Type: Report from Study
  Country: US (occurrence: US)
  Receive Date: 20121211
  Receipt Date: 20130810
  Transmission Date: 20141212
  Serious: Yes (Other)
  Sender: FDA-Public Use
  Company Number: US-BAXTER-2012BAX026854

PATIENT
  Sex: 0

DRUGS (9)
  1. CYCLOPHOSPHAMIDE FOR INJECTION, USP [Suspect]
     Indication: HAEMATOLOGICAL MALIGNANCY
  2. CYCLOPHOSPHAMIDE FOR INJECTION, USP [Suspect]
  3. CYCLOPHOSPHAMIDE FOR INJECTION, USP [Suspect]
  4. FLUDARABINE [Suspect]
     Indication: HAEMATOLOGICAL MALIGNANCY
  5. BUSULFAN [Suspect]
     Indication: HAEMATOLOGICAL MALIGNANCY
     Route: 042
  6. TACROLIMUS [Suspect]
     Indication: IMMUNOSUPPRESSION
     Route: 042
  7. MYCOPHENOLATE MOFETIL [Suspect]
     Indication: IMMUNOSUPPRESSION
     Route: 048
  8. MESNA [Concomitant]
     Indication: PRODUCT USED FOR UNKNOWN INDICATION
  9. FILGRASTIM [Concomitant]
     Indication: PROPHYLAXIS
     Dosage: 5 MCG/KG

REACTIONS (1)
  - Bacteraemia [Unknown]
